FAERS Safety Report 6254900-0 (Version None)
Quarter: 2009Q2

REPORT INFORMATION
  Report Type: 
  Country: None (occurrence: None)
  Receive Date: 20090630
  Receipt Date: 20090615
  Transmission Date: 20091009
  Serious: Yes (Hospitalization)
  Sender: FDA-Public Use
  Company Number: 2009BM000133

PATIENT
  Age: 14 Year
  Sex: Male
  Weight: 22.5 kg

DRUGS (1)
  1. NAGLAZYME [Suspect]
     Indication: MUCOPOLYSACCHARIDOSIS VI
     Dosage: 4 VIALS;QW;IVDRIP
     Route: 041
     Dates: start: 20081111

REACTIONS (1)
  - HERNIA [None]
